FAERS Safety Report 20988384 (Version 1)
Quarter: 2022Q2

REPORT INFORMATION
  Report Type: Other
  Country: None (occurrence: US)
  Receive Date: 20220621
  Receipt Date: 20220621
  Transmission Date: 20220721
  Serious: Yes (Hospitalization)
  Sender: FDA-Public Use
  Company Number: US-XGen Pharmaceuticals DJB, Inc.-2130123

PATIENT
  Age: 77 Year
  Sex: Female
  Weight: 24 kg

DRUGS (1)
  1. TRANEXAMIC ACID [Suspect]
     Active Substance: TRANEXAMIC ACID
     Route: 048

REACTIONS (2)
  - Renal disorder [Recovered/Resolved]
  - Ureteric perforation [Recovered/Resolved]
